FAERS Safety Report 9815111 (Version 1)
Quarter: 2014Q1

REPORT INFORMATION
  Report Type: Spontaneous
  Country: FR (occurrence: FR)
  Receive Date: 20140114
  Receipt Date: 20140114
  Transmission Date: 20141002
  Serious: Yes (Hospitalization)
  Sender: FDA-Public Use
  Company Number: FR-BIOGENIDEC-2014BI002967

PATIENT
  Age: 63 Year
  Sex: Female

DRUGS (13)
  1. AVONEX [Suspect]
     Indication: MULTIPLE SCLEROSIS
     Route: 030
  2. CERIS [Concomitant]
  3. COVERSYL [Concomitant]
  4. ALDACTAZINE [Concomitant]
  5. MEDROL [Concomitant]
  6. INIPOMP [Concomitant]
  7. DOLIPRANE [Concomitant]
  8. LIORESAL [Concomitant]
  9. LAROXYL [Concomitant]
  10. LYRICA [Concomitant]
  11. PROZAC [Concomitant]
  12. XATRAL [Concomitant]
  13. KEPRA [Concomitant]

REACTIONS (2)
  - Pulmonary embolism [Not Recovered/Not Resolved]
  - Multiple sclerosis [Unknown]
